FAERS Safety Report 5652558-2 (Version None)
Quarter: 2008Q1

REPORT INFORMATION
  Report Type: 
  Country: None (occurrence: None)
  Receive Date: 20080306
  Receipt Date: 20080303
  Transmission Date: 20080703
  Serious: Yes (Other)
  Sender: FDA-Public Use
  Company Number: PT-BRISTOL-MYERS SQUIBB COMPANY-14101265

PATIENT
  Sex: Male

DRUGS (1)
  1. HYDROXYUREA [Suspect]

REACTIONS (1)
  - NEOPLASM [None]
